FAERS Safety Report 8190612-4 (Version None)
Quarter: 2012Q1

REPORT INFORMATION
  Report Type: 
  Country: None (occurrence: None)
  Receive Date: 20120307
  Receipt Date: 20120228
  Transmission Date: 20120608
  Serious: No
  Sender: FDA-Public Use
  Company Number: US-BAYER-2012-020113

PATIENT

DRUGS (1)
  1. ALEVE (CAPLET) [Suspect]
     Dosage: UNK
     Dates: start: 20120227

REACTIONS (3)
  - SKIN DISCOLOURATION [None]
  - HYPERSENSITIVITY [None]
  - PRURITUS [None]
